FAERS Safety Report 10638818 (Version 1)
Quarter: 2014Q4

REPORT INFORMATION
  Report Type: Report from Study
  Country: BR (occurrence: BR)
  Receive Date: 20141208
  Receipt Date: 20141208
  Transmission Date: 20150529
  Serious: Yes (Hospitalization)
  Sender: FDA-Public Use
  Company Number: US-ASTRAZENECA-2014SE93071

PATIENT
  Age: 345 Day
  Sex: Female
  Weight: 7.4 kg

DRUGS (5)
  1. DOMPERIDONE [Concomitant]
     Active Substance: DOMPERIDONE
     Indication: GASTROOESOPHAGEAL REFLUX DISEASE
     Route: 048
     Dates: start: 20141119
  2. PROPRANOLOL [Concomitant]
     Active Substance: PROPRANOLOL\PROPRANOLOL HYDROCHLORIDE
     Indication: HYPERTENSION
     Dosage: 1 TABLET DILUTED IN 3 OR 4 DROP OF WATER, ONCE A DAY
     Route: 048
     Dates: start: 20141125
  3. RANITIDINE [Concomitant]
     Active Substance: RANITIDINE\RANITIDINE HYDROCHLORIDE
     Indication: ANTACID THERAPY
     Route: 048
     Dates: start: 20141119
  4. PALIVIZUMAB [Suspect]
     Active Substance: PALIVIZUMAB
     Indication: HEART DISEASE CONGENITAL
     Route: 030
     Dates: start: 20140602
  5. PALIVIZUMAB [Suspect]
     Active Substance: PALIVIZUMAB
     Indication: HEART DISEASE CONGENITAL
     Route: 030
     Dates: start: 20140826

REACTIONS (2)
  - Bronchopneumonia [Recovered/Resolved]
  - Ear infection [Recovering/Resolving]

NARRATIVE: CASE EVENT DATE: 20141113
